FAERS Safety Report 24638144 (Version 1)
Quarter: 2024Q4

REPORT INFORMATION
  Report Type: Spontaneous
  Country: CN (occurrence: CN)
  Receive Date: 20241119
  Receipt Date: 20241119
  Transmission Date: 20250115
  Serious: Yes (Other)
  Sender: MEDIMETRIKS
  Company Number: CN-MEDIMETRIKS-2024-CN-000451

PATIENT
  Age: 34 Year
  Sex: Male

DRUGS (3)
  1. VANCOMYCIN [Suspect]
     Active Substance: VANCOMYCIN
     Indication: Subcutaneous abscess
     Dosage: 1 GRAM EVERY 12 HOURS
     Route: 042
     Dates: start: 20221021
  2. Lidocaine hydrochloride 2% injection [Concomitant]
     Dosage: 20 ML
     Route: 051
  3. AMBROXOL [Concomitant]
     Active Substance: AMBROXOL
     Dosage: 30 MG EVERY 12 HOURS
     Route: 042

REACTIONS (1)
  - Gastrointestinal haemorrhage [Unknown]

NARRATIVE: CASE EVENT DATE: 20221025
